FAERS Safety Report 17963163 (Version 1)
Quarter: 2020Q2

REPORT INFORMATION
  Report Type: Spontaneous
  Country: FR (occurrence: FR)
  Receive Date: 20200630
  Receipt Date: 20200630
  Transmission Date: 20200714
  Serious: Yes (Hospitalization)
  Sender: FDA-Public Use
  Company Number: FR-PFIZER INC-2020249332

PATIENT
  Age: 24 Year
  Sex: Female

DRUGS (3)
  1. ZOLOFT [Suspect]
     Active Substance: SERTRALINE HYDROCHLORIDE
     Dosage: 700 MG, SINGLE
     Route: 048
     Dates: start: 20200525, end: 20200525
  2. LOXAPAC [LOXAPINE SUCCINATE] [Suspect]
     Active Substance: LOXAPINE SUCCINATE
     Dosage: 1000 MG, SINGLE
     Route: 048
     Dates: start: 20200525, end: 20200525
  3. ABILIFY [Suspect]
     Active Substance: ARIPIPRAZOLE
     Dosage: 105 MG, 1X/DAY
     Route: 048
     Dates: start: 20200525, end: 20200525

REACTIONS (5)
  - Tachycardia [Recovered/Resolved]
  - Myoclonic epilepsy [Recovered/Resolved]
  - Drug abuse [Recovered/Resolved]
  - Somnolence [Recovered/Resolved]
  - Hypertension [Recovered/Resolved]

NARRATIVE: CASE EVENT DATE: 20200525
